FAERS Safety Report 6509319-1 (Version None)
Quarter: 2009Q4

REPORT INFORMATION
  Report Type: 
  Country: None (occurrence: None)
  Receive Date: 20091222
  Receipt Date: 20091211
  Transmission Date: 20100525
  Serious: Yes (Life-Threatening, Hospitalization, Other)
  Sender: FDA-Public Use
  Company Number: GB-RANBAXY-2008RR-12355

PATIENT
  Age: 39 Year
  Sex: Male

DRUGS (11)
  1. AMLODIPINE [Suspect]
     Dosage: 280 MG, UNK
     Route: 048
  2. ANGETTES [Suspect]
     Dosage: 975 MG
     Route: 048
  3. DOXAZOSIN MESYLATE [Suspect]
     Dosage: 112 MG, UNK
     Route: 048
  4. METFORMIN HCL [Suspect]
     Dosage: 6500 MG, UNK
  5. ADRENALINE [Concomitant]
  6. CALCIUM [Concomitant]
  7. DEXTROSE [Concomitant]
     Dosage: 230 MG, UNK
     Route: 042
  8. NORADRENALINE [Concomitant]
  9. POTASSIUM [Concomitant]
     Dosage: UNK
  10. INSULIN [Concomitant]
     Dosage: UNK
  11. INSULIN [Concomitant]
     Dosage: 280 UNK, Q1H

REACTIONS (6)
  - CARDIOTOXICITY [None]
  - DRUG TOXICITY [None]
  - HYPERKALAEMIA [None]
  - HYPOGLYCAEMIA [None]
  - HYPOTENSION [None]
  - OVERDOSE [None]
